FAERS Safety Report 8965019 (Version 7)
Quarter: 2013Q1

REPORT INFORMATION
  Report Type: Spontaneous
  Country: US (occurrence: US)
  Receive Date: 20121213
  Receipt Date: 20130125
  Transmission Date: 20140127
  Serious: Yes (Hospitalization)
  Sender: FDA-Public Use
  Company Number: US-JNJFOC-20121201341

PATIENT
  Sex: Male
  Weight: 76.8 kg

DRUGS (5)
  1. XARELTO [Suspect]
     Indication: CEREBROVASCULAR ACCIDENT PROPHYLAXIS
     Route: 048
     Dates: start: 20120701, end: 20120820
  2. XARELTO [Suspect]
     Indication: ATRIAL FIBRILLATION
     Route: 048
     Dates: start: 20120701, end: 20120820
  3. PLAVIX [Concomitant]
  4. AMIODARONE [Concomitant]
  5. IBUPROFEN [Concomitant]
     Dosage: TAKEN FOR MANY YEARS

REACTIONS (2)
  - Small intestinal haemorrhage [Unknown]
  - Faeces discoloured [Unknown]
